FAERS Safety Report 21453028 (Version 1)
Quarter: 2022Q4

REPORT INFORMATION
  Report Type: Other
  Country: DE (occurrence: None)
  Receive Date: 20221013
  Receipt Date: 20221013
  Transmission Date: 20230113
  Serious: No
  Sender: FDA-Public Use
  Company Number: DE-ROCHE-3096766

PATIENT
  Age: 37 Year
  Sex: Female
  Weight: 64 kg

DRUGS (18)
  1. OCRELIZUMAB [Suspect]
     Active Substance: OCRELIZUMAB
     Indication: Relapsing multiple sclerosis
     Route: 042
     Dates: start: 20180605, end: 20180619
  2. OCRELIZUMAB [Suspect]
     Active Substance: OCRELIZUMAB
     Route: 042
     Dates: start: 20181213
  3. DIMETHINDENE [Concomitant]
     Active Substance: DIMETHINDENE
     Indication: Premedication
     Route: 042
     Dates: start: 20181213
  4. DIMETHINDENE [Concomitant]
     Active Substance: DIMETHINDENE
     Route: 042
     Dates: start: 20180619, end: 20180619
  5. DIMETHINDENE [Concomitant]
     Active Substance: DIMETHINDENE
     Route: 042
     Dates: start: 20180605, end: 20180605
  6. INFLUVAC TETRA [Concomitant]
     Active Substance: INFLUENZA VIRUS VACCINE QUADRIVALENT TYPE A+B
     Indication: Antiviral prophylaxis
     Route: 030
     Dates: start: 20211126, end: 20211126
  7. COMIRNATY [Concomitant]
     Active Substance: TOZINAMERAN
     Indication: COVID-19 immunisation
     Route: 030
     Dates: start: 20210125, end: 20210125
  8. COMIRNATY [Concomitant]
     Active Substance: TOZINAMERAN
     Indication: COVID-19 prophylaxis
     Route: 030
     Dates: start: 20210601, end: 20210601
  9. COMIRNATY [Concomitant]
     Active Substance: TOZINAMERAN
     Indication: COVID-19 immunisation
     Route: 030
     Dates: start: 20210216, end: 20210216
  10. METHYPRED [Concomitant]
     Indication: Premedication
     Route: 042
     Dates: start: 20181213
  11. METHYPRED [Concomitant]
     Route: 042
     Dates: start: 20180619, end: 20180619
  12. METHYPRED [Concomitant]
     Route: 042
     Dates: start: 20180605, end: 20180605
  13. TYPHIM VI [Concomitant]
     Active Substance: SALMONELLA TYPHI TY2 VI POLYSACCHARIDE ANTIGEN
     Route: 030
     Dates: start: 20190131, end: 20190131
  14. PREDNIFLUID [Concomitant]
     Indication: Uveitis
     Route: 047
     Dates: start: 20181122, end: 20181212
  15. PREDNIFLUID [Concomitant]
     Indication: Uveitis
     Route: 047
     Dates: start: 20190308
  16. ENOXAPARIN SODIUM [Concomitant]
     Active Substance: ENOXAPARIN SODIUM
     Indication: Factor V Leiden mutation
     Route: 058
     Dates: start: 20191203
  17. PANTOPRAZOLE SODIUM [Concomitant]
     Active Substance: PANTOPRAZOLE SODIUM
     Indication: Chronic gastritis
     Route: 048
     Dates: start: 20181015
  18. PREDNISOLONE [Concomitant]
     Active Substance: PREDNISOLONE
     Indication: Joint effusion
     Route: 048
     Dates: start: 20190107, end: 20190201

REACTIONS (2)
  - COVID-19 [Recovered/Resolved]
  - SARS-CoV-2 antibody test negative [Unknown]

NARRATIVE: CASE EVENT DATE: 20210510
